FAERS Safety Report 15281610 (Version 2)
Quarter: 2018Q3

REPORT INFORMATION
  Report Type: Report from Study
  Country: None (occurrence: DE)
  Receive Date: 20180815
  Receipt Date: 20180827
  Transmission Date: 20181010
  Serious: Yes (Other)
  Sender: FDA-Public Use
  Company Number: DE-BAUSCH-BL-2018-022526

PATIENT
  Sex: Female

DRUGS (1)
  1. KYNTHEUM [Suspect]
     Active Substance: BRODALUMAB
     Indication: PRODUCT USED FOR UNKNOWN INDICATION
     Dosage: ONLY ONE SYRINGE
     Route: 065
     Dates: start: 20180502, end: 20180502

REACTIONS (1)
  - Tuberculosis [Unknown]
